FAERS Safety Report 7649926-6 (Version None)
Quarter: 2011Q3

REPORT INFORMATION
  Report Type: 
  Country: None (occurrence: None)
  Receive Date: 20110802
  Receipt Date: 20110309
  Transmission Date: 20111222
  Serious: Yes (Death)
  Sender: FDA-Public Use
  Company Number: JP-PFIZER INC-2011053770

PATIENT
  Age: 58 Year
  Sex: Male

DRUGS (6)
  1. METHYLPREDNISOLONE [Suspect]
     Dosage: 500 MG DAILY
  2. PREDNISOLONE [Suspect]
     Dosage: 15 MG DAILY
     Dates: start: 20081210
  3. PREDNISOLONE [Suspect]
     Dosage: 30 MG DAILY
  4. VORICONAZOLE [Suspect]
     Dosage: 200 MG, 1X/DAY
     Route: 042
  5. VORICONAZOLE [Suspect]
     Dosage: 400 MG, 1X/DAY
     Route: 042
  6. VORICONAZOLE [Suspect]
     Indication: ASPERGILLOSIS
     Dosage: 300 MG, 1X/DAY
     Route: 042

REACTIONS (1)
  - DRUG INEFFECTIVE [None]
